FAERS Safety Report 25622336 (Version 1)
Quarter: 2025Q3

REPORT INFORMATION
  Report Type: Spontaneous
  Country: US (occurrence: None)
  Receive Date: 20250729
  Receipt Date: 20250729
  Transmission Date: 20251021
  Serious: Yes (Other)
  Sender: FDA-CTU
  Company Number: None

PATIENT
  Age: 43 Year
  Sex: Female

DRUGS (1)
  1. COMPLEMENTARY ALTERNATIVE MEDICINE (CAM) PRODUCT, OTHER [Suspect]
     Active Substance: COMPLEMENTARY ALTERNATIVE MEDICINE (CAM) PRODUCT, OTHER

REACTIONS (4)
  - Product distribution issue [None]
  - Product advertising issue [None]
  - Product storage error [None]
  - Product quality issue [None]

NARRATIVE: CASE EVENT DATE: 20250729
